FAERS Safety Report 4597079-3 (Version None)
Quarter: 2005Q1

REPORT INFORMATION
  Report Type: 
  Country: None (occurrence: None)
  Receive Date: 20050301
  Receipt Date: 20050216
  Transmission Date: 20050727
  Serious: Yes (Hospitalization)
  Sender: FDA-Public Use
  Company Number: 2005036178

PATIENT
  Sex: Male

DRUGS (8)
  1. METHYLPREDNISOLONE ACETATE [Suspect]
     Indication: MULTIPLE MYELOMA
     Dosage: (500 MG, CYCLIC)
  2. ETOPOSIDE [Suspect]
     Indication: MULTIPLE MYELOMA
     Dosage: (40 MG/M2, CYCLIC)
  3. CYTARABINE [Suspect]
     Indication: MULTIPLE MYELOMA
     Dosage: (200 MG/M2, CYCLIC)
  4. CISPLATIN [Suspect]
     Indication: MULTIPLE MYELOMA
     Dosage: (25 MG/M2, CYCLIC)
  5. FILGRASTIM (FILGRASTIM) [Concomitant]
  6. GRANISETRON (GRANISETRON) [Concomitant]
  7. RANITIDINE [Concomitant]
  8. PREDNISONE [Concomitant]

REACTIONS (1)
  - LARGE INTESTINE PERFORATION [None]
